FAERS Safety Report 24432040 (Version 1)
Quarter: 2024Q4

REPORT INFORMATION
  Report Type: Spontaneous
  Country: FR (occurrence: FR)
  Receive Date: 20241014
  Receipt Date: 20241014
  Transmission Date: 20250114
  Serious: Yes (Hospitalization)
  Sender: CHEPLAPHARM
  Company Number: None

PATIENT
  Age: 44 Year
  Sex: Female
  Weight: 105 kg

DRUGS (18)
  1. CAPECITABINE [Suspect]
     Active Substance: CAPECITABINE
     Indication: Breast cancer
     Dosage: FIRST CYCLE OF 500 MG TWICE DAILY, TWO WEEKS OUT OF THREE?DAILY DOSE: 1000 MILLIGRAM
     Dates: start: 20230711
  2. CAPECITABINE [Suspect]
     Active Substance: CAPECITABINE
     Indication: Adjuvant therapy
     Dosage: FIRST CYCLE OF 500 MG TWICE DAILY, TWO WEEKS OUT OF THREE?DAILY DOSE: 1000 MILLIGRAM
     Dates: start: 20230711
  3. CAPECITABINE [Suspect]
     Active Substance: CAPECITABINE
     Indication: Breast cancer
     Dosage: DAILY DOSE: 1 GRAM
     Route: 048
     Dates: start: 20240611, end: 20240625
  4. CAPECITABINE [Suspect]
     Active Substance: CAPECITABINE
     Indication: Adjuvant therapy
     Dosage: DAILY DOSE: 1 GRAM
     Route: 048
     Dates: start: 20240611, end: 20240625
  5. CAPECITABINE [Suspect]
     Active Substance: CAPECITABINE
     Indication: Breast cancer
     Dosage: 2ND CYCLE STARTED ON 01/07/24 AT 1G TWICE DAILY.?DAILY DOSE: 2 GRAM
     Route: 048
     Dates: start: 20240701, end: 20240703
  6. CAPECITABINE [Suspect]
     Active Substance: CAPECITABINE
     Indication: Adjuvant therapy
     Dosage: 2ND CYCLE STARTED ON 01/07/24 AT 1G TWICE DAILY.?DAILY DOSE: 2 GRAM
     Route: 048
     Dates: start: 20240701, end: 20240703
  7. ALFACALCIDOL [Suspect]
     Active Substance: ALFACALCIDOL
  8. SODIUM BICARBONATE [Suspect]
     Active Substance: SODIUM BICARBONATE
     Dosage: 2 CAPSULE(S) MORNING, 2 CAPSULE(S) NOON, 2 CAPSULE(S) EVENING, SINCE 18/07.
     Dates: start: 20240718
  9. CALCIFEDIOL [Suspect]
     Active Substance: CALCIFEDIOL
  10. ALPRAZOLAM [Suspect]
     Active Substance: ALPRAZOLAM
     Dosage: 0-0-1
  11. CALCIUM [Suspect]
     Active Substance: CALCIUM
     Dosage: POWDER FOR DRINKABLE SUSPENSION: 0-1-1
  12. LEVOTHYROXINE [Suspect]
     Active Substance: LEVOTHYROXINE
     Dosage: 1X A DAY?DAILY DOSE: 1 DOSAGE FORM
  13. PREGABALIN [Suspect]
     Active Substance: PREGABALIN
     Dosage: 0-0-1?DAILY DOSE: 1 DOSAGE FORM
  14. PROPRANOLOL [Suspect]
     Active Substance: PROPRANOLOL HYDROCHLORIDE
  15. SEVELAMER [Suspect]
     Active Substance: SEVELAMER
     Dosage: 1 TABLET 3X/DAY?DAILY DOSE: 3 DOSAGE FORM
  16. PRIMPERAN [Suspect]
     Active Substance: METOCLOPRAMIDE HYDROCHLORIDE
     Dosage: 1 TABLET 1 TO 3 TIMES A DAY IF NAUSEA
  17. DARBEPOETIN ALFA [Suspect]
     Active Substance: DARBEPOETIN ALFA
     Dosage: SOL INJ, 0.3 ML S.C. --} 1 DAY/14 FOR 90 DAYS
     Route: 058
  18. FUROSEMIDE [Suspect]
     Active Substance: FUROSEMIDE
     Dosage: SUSPENDED 10 DAYS AGO

REACTIONS (1)
  - Clostridium difficile colitis [Recovered/Resolved]

NARRATIVE: CASE EVENT DATE: 20240703
